FAERS Safety Report 14805328 (Version 1)
Quarter: 2018Q2

REPORT INFORMATION
  Report Type: Spontaneous
  Country: US (occurrence: US)
  Receive Date: 20180417
  Receipt Date: 20180417
  Transmission Date: 20180711
  Serious: Yes (Other)
  Sender: FDA-Public Use
  Company Number: None

PATIENT
  Age: 57 Year
  Sex: Female
  Weight: 81.64 kg

DRUGS (5)
  1. GLUCOSAMINE CHONDRITIN [Concomitant]
  2. TRIAMCINOLONE 0.1% CREAM [Concomitant]
  3. OTEZLA [Suspect]
     Active Substance: APREMILAST
     Indication: PSORIASIS
     Route: 048
     Dates: start: 20180405, end: 20180413
  4. FISH OIL 1000 MG CAP [Concomitant]
  5. BETAMETHASONE DIPROP AUG 0.05 % OINT [Concomitant]

REACTIONS (1)
  - Erythema [None]

NARRATIVE: CASE EVENT DATE: 20180413
